FAERS Safety Report 21898513 (Version 2)
Quarter: 2023Q1

REPORT INFORMATION
  Report Type: Spontaneous
  Country: RO (occurrence: RO)
  Receive Date: 20230123
  Receipt Date: 20230220
  Transmission Date: 20230417
  Serious: Yes (Death)
  Sender: FDA-Public Use
  Company Number: RO-TEVA-2023-RO-2847907

PATIENT
  Age: 71 Year
  Sex: Male

DRUGS (16)
  1. FLUCONAZOLE [Suspect]
     Active Substance: FLUCONAZOLE
     Indication: Antibiotic therapy
     Dosage: FLUCONAZOL 100 ML PER DAY IV
     Route: 042
  2. MEROPENEM [Suspect]
     Active Substance: MEROPENEM
     Indication: Antibiotic therapy
     Dosage: 1 GR EVERY 8 HOURS VIA IV
     Route: 042
  3. MOXIFLOXACIN [Suspect]
     Active Substance: MOXIFLOXACIN
     Indication: Antibiotic therapy
     Dosage: 400 MILLIGRAM DAILY;
     Route: 042
  4. ENOXAPARIN SODIUM [Suspect]
     Active Substance: ENOXAPARIN SODIUM
     Indication: Antibiotic therapy
     Dosage: 0.6 ML SUBCUTANEOUS EVERY 12 HOURS
     Route: 058
  5. DEXAMETHASONE [Suspect]
     Active Substance: DEXAMETHASONE
     Indication: Antibiotic therapy
     Dosage: 1 VIAL OF 8 MG EVERY 12 HOURS
     Route: 065
  6. FLUIMUCIL [Suspect]
     Active Substance: ACETYLCYSTEINE
     Indication: Antibiotic therapy
     Dosage: 2 VIALS PER DAY
     Route: 065
  7. CONTROLOC [Concomitant]
     Active Substance: PANTOPRAZOLE SODIUM
     Indication: Antibiotic therapy
     Dosage: 40 MG DAILY
     Route: 042
  8. PYRIDOXINE HYDROCHLORIDE\SODIUM ASPARTATE [Concomitant]
     Active Substance: PYRIDOXINE HYDROCHLORIDE\SODIUM ASPARTATE
     Indication: Antibiotic therapy
     Dosage: 2 VIALS/DAY
     Route: 065
  9. GLUCONIC CALCIUM [Concomitant]
     Indication: Antibiotic therapy
     Route: 065
  10. METAMIZOLE SODIUM [Concomitant]
     Active Substance: METAMIZOLE SODIUM
     Indication: Antibiotic therapy
     Route: 065
  11. RESPIMAT [Concomitant]
     Indication: Chronic obstructive pulmonary disease
     Dosage: 2,5 MCG/2,5 MCG 2- 0-0 PUFFS PER DAY
     Route: 065
  12. FLUTICASONE PROPIONATE [Concomitant]
     Active Substance: FLUTICASONE PROPIONATE
     Indication: Chronic obstructive pulmonary disease
     Dosage: 125 MCG 1-0-1 PUFF/DAY
     Route: 065
  13. THEOPHYLLINE ANHYDROUS [Concomitant]
     Active Substance: THEOPHYLLINE ANHYDROUS
     Indication: Chronic obstructive pulmonary disease
     Dosage: 200MG1-0-1 CPS/DAY
     Route: 065
  14. ATACAND [Concomitant]
     Active Substance: CANDESARTAN CILEXETIL
     Indication: Blood pressure increased
     Dosage: 32 MILLIGRAM DAILY; 1-0-1
  15. RILMENIDINE [Concomitant]
     Active Substance: RILMENIDINE
     Indication: Blood pressure increased
     Dosage: 2 MILLIGRAM DAILY;
  16. CARVEDILOL [Concomitant]
     Active Substance: CARVEDILOL
     Indication: Blood pressure increased
     Dosage: 12.5 MILLIGRAM DAILY;
     Route: 065

REACTIONS (1)
  - Drug ineffective [Fatal]
